FAERS Safety Report 5144641-5 (Version None)
Quarter: 2006Q4

REPORT INFORMATION
  Report Type: 
  Country: None (occurrence: None)
  Receive Date: 20061031
  Receipt Date: 20061017
  Transmission Date: 20070319
  Serious: Yes (Hospitalization)
  Sender: FDA-Public Use
  Company Number: BR-2006-031993

PATIENT
  Age: 40 Year
  Sex: Female

DRUGS (1)
  1. BETAFERON                  (INTERFERON BETA - 1B) [Suspect]
     Indication: MULTIPLE SCLEROSIS
     Dosage: SUBCUTANEOUS
     Route: 058
     Dates: start: 20050511, end: 20060701

REACTIONS (5)
  - MALAISE [None]
  - PAIN [None]
  - PERITONITIS BACTERIAL [None]
  - SUTURE RELATED COMPLICATION [None]
  - SUTURE RUPTURE [None]
